FAERS Safety Report 6413392-9 (Version None)
Quarter: 2009Q4

REPORT INFORMATION
  Report Type: 
  Country: None (occurrence: None)
  Receive Date: 20091026
  Receipt Date: 20091020
  Transmission Date: 20100525
  Serious: No
  Sender: FDA-Public Use
  Company Number: JP-BRISTOL-MYERS SQUIBB COMPANY-14807234

PATIENT
  Age: 64 Year
  Sex: Male
  Weight: 48 kg

DRUGS (10)
  1. ERBITUX [Suspect]
     Indication: COLON CANCER
     Dosage: 17MAR-17MAR09:400MG/M2.24MAR-06OCT:250 MG/M2 .RECENT INFUSION ON 25-AUG-09
     Route: 042
     Dates: start: 20090317, end: 20091006
  2. IRINOTECAN HCL [Suspect]
     Indication: COLON CANCER
     Dosage: 150 MG:17MAR-14MAR09 120 MG: 12MAY-11AUG09
     Route: 042
     Dates: start: 20090317, end: 20090811
  3. POLARAMINE [Concomitant]
     Indication: PREMEDICATION
     Route: 042
     Dates: start: 20090317
  4. DECADRON [Concomitant]
     Indication: PREMEDICATION
     Route: 042
     Dates: start: 20090317
  5. SEROTONE [Concomitant]
     Indication: PREMEDICATION
     Dosage: ALSO TAKEN IV, 14APR09
     Route: 048
     Dates: start: 20090317
  6. SEROTONE [Concomitant]
     Indication: ANTIEMETIC SUPPORTIVE CARE
     Dosage: ALSO TAKEN IV, 14APR09
     Route: 048
     Dates: start: 20090317
  7. NAUZELIN [Concomitant]
     Indication: ANTIEMETIC SUPPORTIVE CARE
     Route: 048
     Dates: start: 20090407
  8. LEUCON [Concomitant]
     Indication: NEUTROPHIL COUNT DECREASED
     Dosage: TABS
     Route: 048
     Dates: start: 20090807, end: 20090814
  9. GRAN [Concomitant]
     Indication: COLONY STIMULATING FACTOR THERAPY
     Dosage: GRAN SYRINGE
     Route: 058
     Dates: start: 20090407, end: 20090407
  10. CEPHARANTHIN [Concomitant]
     Indication: NEUTROPHIL COUNT DECREASED
     Route: 048
     Dates: start: 20090407, end: 20090414

REACTIONS (1)
  - HYPOAESTHESIA [None]
